FAERS Safety Report 8398664 (Version 5)
Quarter: 2013Q1

REPORT INFORMATION
  Report Type: Spontaneous
  Country: US (occurrence: US)
  Receive Date: 20120209
  Receipt Date: 20130111
  Transmission Date: 20140127
  Serious: Yes (Hospitalization, Other)
  Sender: FDA-Public Use
  Company Number: US-MERCK-1202USA01294

PATIENT
  Sex: 0

DRUGS (5)
  1. FOSAMAX [Suspect]
     Indication: OSTEOPOROSIS
     Dosage: 70 MG, QW
     Route: 048
     Dates: start: 200107
  2. VITAMIN E [Concomitant]
     Dosage: 400 MG, UNK
     Dates: start: 2001
  3. OCUVITE PRESERVISION [Concomitant]
     Dosage: 1 DF, QD
     Dates: start: 1997
  4. ACTOS [Concomitant]
     Dosage: UNK
     Dates: start: 200104
  5. LEVOTHROID [Concomitant]
     Indication: HYPOTHYROIDISM
     Dosage: UNK
     Dates: start: 2001

REACTIONS (60)
  - Femur fracture [Unknown]
  - Intramedullary rod insertion [Unknown]
  - Open reduction of fracture [Unknown]
  - Ulna fracture [Unknown]
  - Radius fracture [Unknown]
  - Closed fracture manipulation [Unknown]
  - Lower limb fracture [Unknown]
  - Limb operation [Unknown]
  - Upper limb fracture [Unknown]
  - Open reduction of fracture [Unknown]
  - Implantable defibrillator replacement [Unknown]
  - Femur fracture [Unknown]
  - Arthroscopy [Unknown]
  - Anaemia [Unknown]
  - Urinary tract infection [Unknown]
  - Liver function test abnormal [Recovering/Resolving]
  - Gastroenteritis [Recovering/Resolving]
  - Myocardial infarction [Unknown]
  - Cardiac pacemaker insertion [Unknown]
  - Surgery [Unknown]
  - Coronary artery bypass [Unknown]
  - Coronary artery disease [Unknown]
  - Hypertension [Unknown]
  - Blood cholesterol increased [Unknown]
  - Fall [Unknown]
  - Foot fracture [Unknown]
  - Foot fracture [Unknown]
  - Tendon injury [Unknown]
  - Skin injury [Unknown]
  - Debridement [Unknown]
  - Skin ulcer [Unknown]
  - Atelectasis [Unknown]
  - Pulmonary congestion [Unknown]
  - Cardiomegaly [Unknown]
  - Haematemesis [Unknown]
  - Hypoxia [Unknown]
  - Fall [Unknown]
  - Bronchitis [Unknown]
  - Fall [Unknown]
  - Fall [Unknown]
  - Patella fracture [Unknown]
  - Transfusion [Recovered/Resolved]
  - Diabetic retinopathy [Unknown]
  - Peptic ulcer [Unknown]
  - Diabetic retinopathy [Unknown]
  - Cardiac failure congestive [Unknown]
  - Depression [Unknown]
  - Dyspnoea exertional [Unknown]
  - Rheumatoid arthritis [Unknown]
  - Osteoarthritis [Unknown]
  - Foot fracture [Unknown]
  - Hypotension [Unknown]
  - Gout [Unknown]
  - Hypoaesthesia [Unknown]
  - Paraesthesia [Unknown]
  - Drug ineffective [Unknown]
  - Nausea [Unknown]
  - Dyspepsia [Unknown]
  - Vomiting [Unknown]
  - Abdominal pain [Unknown]
